FAERS Safety Report 7117349-4 (Version None)
Quarter: 2010Q4

REPORT INFORMATION
  Report Type: 
  Country: None (occurrence: None)
  Receive Date: 20101122
  Receipt Date: 20101109
  Transmission Date: 20110411
  Serious: Yes (Other)
  Sender: FDA-Public Use
  Company Number: US-ROCHE-721629

PATIENT
  Sex: Male
  Weight: 54.4 kg

DRUGS (1)
  1. ACCUTANE [Suspect]
     Indication: ACNE
     Dosage: DOSE REPORTED AS 40/20
     Route: 065
     Dates: start: 19950410, end: 19950906

REACTIONS (9)
  - ANAL FISSURE [None]
  - ATTENTION DEFICIT/HYPERACTIVITY DISORDER [None]
  - CROHN'S DISEASE [None]
  - DEPRESSION [None]
  - EPISTAXIS [None]
  - INFLAMMATORY BOWEL DISEASE [None]
  - LIP DRY [None]
  - STRESS [None]
  - SUICIDAL IDEATION [None]
